FAERS Safety Report 21614823 (Version 1)
Quarter: 2022Q4

REPORT INFORMATION
  Report Type: Spontaneous
  Country: IT (occurrence: IT)
  Receive Date: 20221118
  Receipt Date: 20221118
  Transmission Date: 20230113
  Serious: Yes (Hospitalization)
  Sender: FDA-Public Use
  Company Number: IT-MYLANLABS-2022M1129227

PATIENT
  Age: 1 Month
  Sex: Male

DRUGS (3)
  1. VANCOMYCIN [Suspect]
     Active Substance: VANCOMYCIN
     Indication: CNS ventriculitis
     Dosage: 15 MILLIGRAM/KILOGRAM, QD (LOADING DOSE) (INFUSION)
     Route: 042
  2. VANCOMYCIN [Suspect]
     Active Substance: VANCOMYCIN
     Indication: Meningitis
     Dosage: 45 MILLIGRAM/KILOGRAM, QD  (INFUSION)
     Route: 042
  3. VANCOMYCIN [Suspect]
     Active Substance: VANCOMYCIN
     Dosage: 40 MILLIGRAM/KILOGRAM, QD  (INFUSION)
     Route: 042

REACTIONS (2)
  - Drug level increased [Recovered/Resolved]
  - Drug ineffective [Unknown]
